FAERS Safety Report 26020750 (Version 1)
Quarter: 2025Q4

REPORT INFORMATION
  Report Type: Spontaneous
  Country: US (occurrence: None)
  Receive Date: 20251107
  Receipt Date: 20251107
  Transmission Date: 20260117
  Serious: Yes (Death)
  Sender: FDA-CTU
  Company Number: None

PATIENT
  Sex: Male

DRUGS (6)
  1. TETRABENAZINE [Suspect]
     Active Substance: TETRABENAZINE
     Indication: Palliative care
     Dosage: FREQUENCY : AS DIRECTED;?
     Route: 048
     Dates: start: 20170808
  2. ASPIRIN CHW [Concomitant]
  3. CENTRUM SILV TAB 50+WOMEN [Concomitant]
  4. VITAMIN D3 [Concomitant]
     Active Substance: CHOLECALCIFEROL
  5. STOOL SOFTNR [Concomitant]
  6. TUMS ULTRA CHW [Concomitant]

REACTIONS (1)
  - Death [None]
